FAERS Safety Report 6955773-0 (Version None)
Quarter: 2010Q3

REPORT INFORMATION
  Report Type: 
  Country: None (occurrence: None)
  Receive Date: 20100830
  Receipt Date: 20100730
  Transmission Date: 20110219
  Serious: Yes (Life-Threatening, Other)
  Sender: FDA-Public Use
  Company Number: US-AMGEN-QUU428191

PATIENT
  Sex: Male

DRUGS (3)
  1. NPLATE [Suspect]
     Indication: IDIOPATHIC THROMBOCYTOPENIC PURPURA
     Dates: start: 20090716
  2. CORTICOSTEROIDS [Concomitant]
     Dates: start: 19970202
  3. IMMU-G [Concomitant]
     Route: 042
     Dates: start: 20031111

REACTIONS (1)
  - DRUG INEFFECTIVE [None]
